FAERS Safety Report 4726251-4 (Version None)
Quarter: 2005Q3

REPORT INFORMATION
  Report Type: 
  Country: None (occurrence: None)
  Receive Date: 20050725
  Receipt Date: 20050711
  Transmission Date: 20060218
  Serious: Yes (Hospitalization, Other)
  Sender: FDA-Public Use
  Company Number: HQWYE103911JUL05

PATIENT
  Age: 47 Year
  Sex: Male

DRUGS (1)
  1. ADVIL [Suspect]
     Dosage: ORAL
     Route: 048
     Dates: start: 20041223, end: 20051225

REACTIONS (1)
  - LEUKOCYTOCLASTIC VASCULITIS [None]
